FAERS Safety Report 4809010-3 (Version None)
Quarter: 2005Q4

REPORT INFORMATION
  Report Type: 
  Country: None (occurrence: None)
  Receive Date: 20051025
  Receipt Date: 20040602
  Transmission Date: 20060501
  Serious: Yes (Other)
  Sender: FDA-Public Use
  Company Number: JP-ROCHE-369769

PATIENT
  Age: 58 Year
  Sex: Female

DRUGS (2)
  1. PEG-INTERFERON A-2A (RO 25-8310) [Suspect]
     Route: 058
     Dates: start: 20040423, end: 20040423
  2. SELOKEN [Concomitant]
     Route: 048
     Dates: start: 20040302

REACTIONS (2)
  - BLOOD PRESSURE DECREASED [None]
  - URTICARIA [None]
